FAERS Safety Report 6045669-3 (Version None)
Quarter: 2009Q1

REPORT INFORMATION
  Report Type: 
  Country: None (occurrence: None)
  Receive Date: 20090121
  Receipt Date: 20081212
  Transmission Date: 20090719
  Serious: Yes (Other)
  Sender: FDA-Public Use
  Company Number: JP-ABBOTT-99P-087-0081592-00

PATIENT
  Age: 44 Year
  Sex: Female

DRUGS (10)
  1. KLARICID TABLETS [Suspect]
     Indication: BRONCHITIS
     Route: 048
     Dates: start: 19990203, end: 19990204
  2. KLARICID TABLETS [Suspect]
  3. KLARICID TABLETS [Suspect]
  4. KLARICID TABLETS [Suspect]
  5. CARBOCISTEINE [Concomitant]
     Indication: DRUG USE FOR UNKNOWN INDICATION
     Route: 048
     Dates: start: 19990203, end: 19990204
  6. DEXTROMETHORPHAN HYDROBROMIDE [Concomitant]
     Indication: DRUG USE FOR UNKNOWN INDICATION
     Route: 048
     Dates: start: 19990203, end: 19990204
  7. CHLORPHENIRAMINE MALEATE [Concomitant]
     Indication: DRUG USE FOR UNKNOWN INDICATION
     Route: 048
     Dates: start: 19990203, end: 19990204
  8. NIFEDIPINE [Concomitant]
     Indication: HYPERTENSION
     Route: 048
     Dates: start: 19971002, end: 19990204
  9. AZELASTINE HCL [Concomitant]
     Indication: ALLERGIC BRONCHITIS
     Route: 048
     Dates: start: 19970109, end: 19990204
  10. PLANTAGO HERB EXTRACT [Concomitant]
     Indication: DRUG USE FOR UNKNOWN INDICATION

REACTIONS (4)
  - CHEST DISCOMFORT [None]
  - LOSS OF CONSCIOUSNESS [None]
  - THIRST [None]
  - TREMOR [None]
